FAERS Safety Report 9857382 (Version 1)
Quarter: 2014Q1

REPORT INFORMATION
  Report Type: Report from Study
  Country: US (occurrence: US)
  Receive Date: 20140131
  Receipt Date: 20140131
  Transmission Date: 20141002
  Serious: Yes (Other)
  Sender: FDA-Public Use
  Company Number: US-ROCHE-1340270

PATIENT
  Age: 11 Year
  Sex: Female
  Weight: 54.8 kg

DRUGS (2)
  1. NUTROPIN AQ [Suspect]
     Indication: GROWTH HORMONE DEFICIENCY
     Dosage: PEN STRENGTH 20MG/2ML
     Route: 058
     Dates: start: 20060313, end: 20140109
  2. NUTROPIN AQ [Suspect]
     Route: 058
     Dates: start: 20140109

REACTIONS (5)
  - Arthralgia [Unknown]
  - Pain [Unknown]
  - Growth retardation [Unknown]
  - Eye operation [Unknown]
  - Drug dose omission [Unknown]
